FAERS Safety Report 8957807 (Version 1)
Quarter: 2012Q4

REPORT INFORMATION
  Report Type: 
  Country: DE (occurrence: ES)
  Receive Date: 20121211
  Receipt Date: 20121211
  Transmission Date: 20130627
  Serious: Yes (Hospitalization)
  Sender: FDA-Public Use
  Company Number: ES-FRI-1000040964

PATIENT
  Age: 79 Year
  Sex: Female

DRUGS (4)
  1. MEMANTINE [Suspect]
     Indication: DEMENTIA ALZHEIMER^S TYPE
     Dosage: 20 mg
     Route: 048
     Dates: start: 2012, end: 2012
  2. DULOXETINE [Suspect]
     Indication: DEPRESSION
     Dosage: 30 mg
     Route: 048
     Dates: start: 20120421, end: 20120421
  3. DEPRAX (TRAZODONE HYDROCHLORIDE) [Suspect]
     Indication: DEPRESSION
     Dosage: 100 mg
     Route: 048
     Dates: start: 20120421, end: 20120421
  4. LYRICA [Suspect]
     Indication: ANXIETY
     Dosage: 75 mg
     Route: 048
     Dates: start: 2012, end: 2012

REACTIONS (4)
  - Respiratory acidosis [Recovered/Resolved]
  - Hypoxic-ischaemic encephalopathy [Recovered/Resolved]
  - Respiratory failure [Recovered/Resolved]
  - Drug interaction [Recovered/Resolved]
